FAERS Safety Report 8340063-4 (Version None)
Quarter: 2012Q2

REPORT INFORMATION
  Report Type: 
  Country: None (occurrence: None)
  Receive Date: 20120507
  Receipt Date: 20090401
  Transmission Date: 20120825
  Serious: No
  Sender: FDA-Public Use
  Company Number: US-TEVA-2009002802

PATIENT
  Age: 77 Year
  Sex: Male

DRUGS (3)
  1. TREANDA [Suspect]
     Indication: CHRONIC LYMPHOCYTIC LEUKAEMIA
     Dosage: 195 MILLIGRAM;
     Route: 042
     Dates: start: 20090303, end: 20090331
  2. ANTI NAUSEA MEDICATIONS [Concomitant]
     Route: 048
     Dates: start: 20090303, end: 20090331
  3. ALLOPURINOL [Concomitant]
     Route: 048
     Dates: start: 20090303, end: 20090331

REACTIONS (1)
  - MUSCLE SPASMS [None]
